FAERS Safety Report 7422636-6 (Version None)
Quarter: 2011Q2

REPORT INFORMATION
  Report Type: 
  Country: None (occurrence: None)
  Receive Date: 20110419
  Receipt Date: 20110414
  Transmission Date: 20111010
  Serious: Yes (Hospitalization, Other)
  Sender: FDA-Public Use
  Company Number: US-ELI_LILLY_AND_COMPANY-US200910001791

PATIENT
  Sex: Female
  Weight: 79.365 kg

DRUGS (13)
  1. BYETTA [Suspect]
     Indication: TYPE 2 DIABETES MELLITUS
     Dosage: 5 UG, 2/D
  2. HYDROCHLOROTHIAZIDE [Concomitant]
     Indication: HYPERTENSION
     Dosage: 25 MG, UNK
     Dates: start: 20071120
  3. ACTOS /SCH/ [Concomitant]
     Dosage: UNK, UNK
  4. ZOFRAN [Concomitant]
     Indication: GASTROOESOPHAGEAL REFLUX DISEASE
     Dosage: UNK, UNK
     Dates: start: 20090514
  5. BYETTA [Suspect]
     Dosage: 5 UG, 2/D
     Dates: start: 20090601, end: 20090615
  6. ASPIRIN [Concomitant]
     Indication: PRODUCT USED FOR UNKNOWN INDICATION
     Dosage: 325 MG, DAILY (1/D)
  7. BYETTA [Suspect]
     Dosage: 10 UG, 2/D
  8. BYETTA [Suspect]
     Dosage: 10 UG, 2/D
  9. TRANDOLAPRIL [Concomitant]
     Indication: HYPERTENSION
     Dosage: UNK, UNK
     Dates: start: 20070720
  10. AMBIEN CR [Concomitant]
     Indication: SLEEP DISORDER
  11. ENABLEX /01760401/ [Concomitant]
     Indication: HYPERTONIC BLADDER
     Dosage: 15 MG, UNK
     Dates: start: 20090603
  12. PROTONIX [Concomitant]
     Indication: GASTROOESOPHAGEAL REFLUX DISEASE
  13. GLIPIZIDE [Concomitant]
     Dosage: UNK, UNK

REACTIONS (26)
  - HYPOTENSION [None]
  - OFF LABEL USE [None]
  - HEPATIC STEATOSIS [None]
  - GASTRITIS [None]
  - BLOOD GLUCOSE INCREASED [None]
  - SINUSITIS [None]
  - DRUG INEFFECTIVE [None]
  - NAUSEA [None]
  - DYSPEPSIA [None]
  - DECREASED APPETITE [None]
  - ERUCTATION [None]
  - GASTROOESOPHAGEAL REFLUX DISEASE [None]
  - WEIGHT DECREASED [None]
  - MUSCLE TWITCHING [None]
  - DEHYDRATION [None]
  - FLATULENCE [None]
  - NERVOUS SYSTEM DISORDER [None]
  - REFUSAL OF TREATMENT BY PATIENT [None]
  - CONDITION AGGRAVATED [None]
  - PANCREATITIS [None]
  - PANIC ATTACK [None]
  - IMPAIRED GASTRIC EMPTYING [None]
  - BLOOD CHOLESTEROL INCREASED [None]
  - ABDOMINAL DISTENSION [None]
  - DRUG INTERACTION [None]
  - VOMITING [None]
